FAERS Safety Report 6335050-1 (Version None)
Quarter: 2009Q3

REPORT INFORMATION
  Report Type: 
  Country: None (occurrence: None)
  Receive Date: 20090831
  Receipt Date: 20090824
  Transmission Date: 20100115
  Serious: Yes (Hospitalization, Congenital Anomaly)
  Sender: FDA-Public Use
  Company Number: A0751153A

PATIENT
  Sex: Female
  Weight: 2 kg

DRUGS (3)
  1. PAXIL [Suspect]
     Indication: DEPRESSION
     Dosage: 40MG PER DAY
     Dates: start: 19930101, end: 19940704
  2. SYNTHROID [Concomitant]
     Indication: HYPOTHYROIDISM
     Dates: start: 19950101
  3. VITAMIN TAB [Concomitant]
     Dates: start: 19940601, end: 19950201

REACTIONS (31)
  - ANXIETY [None]
  - ASTHMA [None]
  - ATTENTION DEFICIT/HYPERACTIVITY DISORDER [None]
  - BLINDNESS [None]
  - BODY HEIGHT BELOW NORMAL [None]
  - BRONCHITIS [None]
  - CONVULSION [None]
  - DIAPHRAGMATIC HERNIA [None]
  - DRUG EXPOSURE DURING PREGNANCY [None]
  - DYSKINESIA OESOPHAGEAL [None]
  - DYSPEPSIA [None]
  - DYSPNOEA [None]
  - EPILEPSY [None]
  - FOETAL GROWTH RETARDATION [None]
  - GASTROINTESTINAL HAEMORRHAGE [None]
  - GASTROOESOPHAGEAL REFLUX DISEASE [None]
  - HEART DISEASE CONGENITAL [None]
  - HYPERSENSITIVITY [None]
  - MULTIPLE SCLEROSIS [None]
  - NEURAL TUBE DEFECT [None]
  - OESOPHAGEAL ATRESIA [None]
  - PECTUS EXCAVATUM [None]
  - PNEUMONIA [None]
  - PYREXIA [None]
  - SCOLIOSIS [None]
  - SINUSITIS [None]
  - SPINA BIFIDA [None]
  - SPINE MALFORMATION [None]
  - TRACHEO-OESOPHAGEAL FISTULA [None]
  - TRACHEOMALACIA [None]
  - VACTERL SYNDROME [None]
